FAERS Safety Report 4338323-7 (Version None)
Quarter: 2004Q2

REPORT INFORMATION
  Report Type: 
  Country: None (occurrence: None)
  Receive Date: 20040407
  Receipt Date: 20040326
  Transmission Date: 20050107
  Serious: Yes (Hospitalization)
  Sender: FDA-Public Use
  Company Number: 2004206753FR

PATIENT
  Age: 1 Day
  Sex: Female
  Weight: 3.6 kg

DRUGS (13)
  1. XANAX [Suspect]
     Indication: DEPRESSION
     Dosage: 0.5 MG, BID, ORAL
     Route: 048
  2. LORAZEPAM [Suspect]
     Indication: DEPRESSION
     Dosage: ORAL
     Route: 048
  3. TRANXENE [Concomitant]
  4. ANAFRANIL [Suspect]
     Indication: DEPRESSION
     Dosage: 75 MG, BID, ORAL
     Route: 048
  5. KETOPROFEN [Concomitant]
  6. ACETAMINOPHEN [Concomitant]
  7. MYOLASTAN [Concomitant]
  8. MORPHINE [Concomitant]
  9. OMEPRAZOLE [Concomitant]
  10. DUPHALAC [Concomitant]
  11. SORBITOL [Concomitant]
  12. FLUCONAZOLE [Concomitant]
  13. PRIMPERAN INJ [Concomitant]

REACTIONS (24)
  - AGITATION [None]
  - ANORECTAL DISORDER [None]
  - CAESAREAN SECTION [None]
  - DEVELOPMENTAL DELAY [None]
  - DRUG EXPOSURE DURING PREGNANCY [None]
  - FEEDING PROBLEM IN NEWBORN [None]
  - GASTRIC DISORDER [None]
  - HIGH ARCHED PALATE [None]
  - HYPERTONIA [None]
  - HYPOTONIA [None]
  - IRRITABILITY [None]
  - LARYNGOMALACIA [None]
  - LEUKOPENIA [None]
  - MICROCEPHALY [None]
  - MONOCYTOSIS [None]
  - NEONATAL DISORDER [None]
  - NERVOUS SYSTEM DISORDER [None]
  - OESOPHAGITIS [None]
  - POLYHYDRAMNIOS [None]
  - POOR SUCKING REFLEX [None]
  - SEDATION [None]
  - STRIDOR [None]
  - TACHYPNOEA [None]
  - VIRAL INFECTION [None]
